FAERS Safety Report 6788942 (Version 17)
Quarter: 2013Q3

REPORT INFORMATION
  Report Type: Spontaneous
  Country: US (occurrence: US)
  Receive Date: 20081016
  Receipt Date: 20130801
  Transmission Date: 20140515
  Serious: Yes (Death, Hospitalization, Other)
  Sender: FDA-Public Use
  Company Number: PHEH2008US09068

PATIENT
  Age: 74 Year
  Sex: Female

DRUGS (66)
  1. AREDIA [Suspect]
     Dates: start: 20030922, end: 2005
  2. ZOMETA [Suspect]
     Dosage: 4 MG
     Route: 042
     Dates: end: 20071025
  3. ZOMETA [Suspect]
     Dosage: 2 MG
     Dates: start: 20050512, end: 20071025
  4. METFORMIN [Concomitant]
  5. LISINOPRIL [Concomitant]
  6. NABUMETONE [Concomitant]
  7. HYDROCHLOROTHIAZIDE [Concomitant]
  8. KLOR-CON [Concomitant]
  9. GEMFIBROZIL [Concomitant]
  10. MULTIVITAMINS [Concomitant]
  11. CALCIUM [Concomitant]
  12. PRILOSEC [Concomitant]
  13. VICODIN [Concomitant]
  14. AROMASIN [Concomitant]
     Dosage: 25 MG
  15. TAMOXIFEN [Concomitant]
  16. ZESTRIL [Concomitant]
     Indication: HYPERTENSION
     Dosage: 10 MG
  17. ORUVAIL [Concomitant]
     Dosage: 200 MG
     Route: 048
  18. ADVIL [Concomitant]
  19. PRINIVIL [Concomitant]
  20. TAXOL [Concomitant]
  21. XELODA [Concomitant]
  22. DEXAMETHASONE [Concomitant]
     Dosage: 4 MG
  23. LASIX [Concomitant]
     Dosage: 40 MG
     Route: 048
  24. GLUCOSAMINE [Concomitant]
     Dosage: 500 MG
     Route: 048
  25. COQ10 [Concomitant]
  26. CEPHRADINE [Concomitant]
     Dosage: 250 MG
  27. TUSSI-ORGANIDIN ^HORNER^ [Concomitant]
  28. AMOXIL ^AYERST LAB^ [Concomitant]
     Dosage: 500 MG
  29. SELDANE [Concomitant]
     Dosage: 60 MG
  30. LIVOSTIN [Concomitant]
  31. KETOPROFEN [Concomitant]
     Dosage: 200 MG
  32. HYDROCODONE W/APAP [Concomitant]
  33. CEPHALEXIN [Concomitant]
     Dosage: 500 MG
  34. ALPRAZOLAM [Concomitant]
     Dosage: 0.25 MG
  35. AMBIEN [Concomitant]
     Dosage: 10 MG
  36. PROPACET [Concomitant]
  37. ALLEGRA [Concomitant]
     Dosage: 60 MG
  38. CELEBREX [Concomitant]
     Dosage: 200 MG
  39. OCUFLOX [Concomitant]
  40. CYCLOGYL [Concomitant]
  41. FAMOTIDINE [Concomitant]
     Dosage: 20 MG
  42. PROTONIX ^PHARMACIA^ [Concomitant]
     Dosage: 40 MG
  43. POTASSIUM CHLORIDE [Concomitant]
  44. CARISOPRODOL [Concomitant]
     Dosage: 350 MG
  45. DETROL [Concomitant]
     Dosage: 4 MG
  46. PREDNISOL [Concomitant]
  47. ATROVENT [Concomitant]
  48. INDOMETHACIN [Concomitant]
     Dosage: 50 MG
  49. MORPHINE SULFATE [Concomitant]
     Dosage: 15 MG
  50. TRIAMCINOLONE [Concomitant]
  51. AZITHROMYCIN [Concomitant]
     Dosage: 250 MG
  52. CYCLOBENZAPRINE [Concomitant]
     Dosage: 10 MG
  53. OXYCODONE/APAP [Concomitant]
  54. LYRICA [Concomitant]
     Dosage: 50 MG
  55. PROCHLORPERAZINE [Concomitant]
     Dosage: 10 MG
  56. NEURONTIN [Concomitant]
     Indication: ANALGESIC THERAPY
  57. CHEMOTHERAPEUTICS NOS [Concomitant]
  58. AVASTIN [Concomitant]
  59. ARANESP [Concomitant]
     Indication: ANAEMIA
  60. FOSAMAX [Concomitant]
  61. RELAFEN [Concomitant]
  62. OCUVITE LUTEIN AMD [Concomitant]
  63. PRESERVISION /USA/ [Concomitant]
  64. LORATADINE [Concomitant]
     Dosage: 10 MG, QD
  65. ACETYLSALICYLIC ACID [Concomitant]
  66. FASLODEX [Concomitant]

REACTIONS (76)
  - Malignant neoplasm progression [Fatal]
  - Breast cancer [Fatal]
  - Breast cancer metastatic [Fatal]
  - Fibula fracture [Unknown]
  - Ankle fracture [Unknown]
  - Polyp [Unknown]
  - Cervix haemorrhage uterine [Unknown]
  - Uterine haemorrhage [Unknown]
  - Uterine cervical squamous metaplasia [Unknown]
  - Osteoarthritis [Unknown]
  - Rotator cuff syndrome [Unknown]
  - Synovial cyst [Unknown]
  - Basal cell carcinoma [Unknown]
  - Seborrhoeic keratosis [Unknown]
  - Epicondylitis [Unknown]
  - Cardiac failure congestive [Unknown]
  - Osteonecrosis of jaw [Unknown]
  - Bone disorder [Unknown]
  - Tooth abscess [Unknown]
  - Injury [Unknown]
  - Disability [Unknown]
  - Pain [Unknown]
  - Anxiety [Unknown]
  - Anhedonia [Unknown]
  - Hypertension [Unknown]
  - Hypercholesterolaemia [Unknown]
  - Intervertebral disc degeneration [Unknown]
  - Intervertebral disc protrusion [Unknown]
  - Pleural effusion [Unknown]
  - Atelectasis [Unknown]
  - Overweight [Unknown]
  - Herpes zoster [Recovering/Resolving]
  - Blood creatinine increased [Unknown]
  - Anaemia [Unknown]
  - Gastrooesophageal reflux disease [Unknown]
  - Urinary tract infection [Unknown]
  - Fluid retention [Unknown]
  - Musculoskeletal pain [Unknown]
  - Peripheral vascular disorder [Unknown]
  - Oedema peripheral [Unknown]
  - Migraine [Unknown]
  - Type 2 diabetes mellitus [Unknown]
  - Arthropathy [Unknown]
  - Metastases to liver [Unknown]
  - Metastases to lung [Unknown]
  - Hepatic cyst [Unknown]
  - Hepatic lesion [Unknown]
  - Pulmonary mass [Unknown]
  - Intervertebral disc space narrowing [Unknown]
  - Cerebral atrophy [Unknown]
  - Cerebral ischaemia [Unknown]
  - Walking aid user [Unknown]
  - Pyrexia [Unknown]
  - Nausea [Unknown]
  - Drug intolerance [Unknown]
  - Pain in extremity [Unknown]
  - Arthralgia [Unknown]
  - Blood count abnormal [Unknown]
  - Bone pain [Unknown]
  - Furuncle [Unknown]
  - Neuropathy peripheral [Unknown]
  - Hypoaesthesia [Unknown]
  - Constipation [Unknown]
  - Asthenia [Unknown]
  - Dyspnoea [Unknown]
  - Pathological fracture [Unknown]
  - Malaise [Unknown]
  - Depressed level of consciousness [Unknown]
  - Disorientation [Unknown]
  - Spinal column stenosis [Recovering/Resolving]
  - Radiculopathy [Recovering/Resolving]
  - Back pain [Unknown]
  - Paraesthesia [Recovering/Resolving]
  - Cataract [Unknown]
  - Cholelithiasis [Unknown]
  - Renal failure [Unknown]
